FAERS Safety Report 17143569 (Version 1)
Quarter: 2019Q4

REPORT INFORMATION
  Report Type: Report from Study
  Country: BR (occurrence: BR)
  Receive Date: 20191211
  Receipt Date: 20191211
  Transmission Date: 20200122
  Serious: Yes (Hospitalization)
  Sender: FDA-Public Use
  Company Number: BR-AMERICAN REGENT INC-20191445

PATIENT
  Age: 32 Year
  Sex: Male

DRUGS (14)
  1. ENTYVIO [Suspect]
     Active Substance: VEDOLIZUMAB
     Dosage: 1 DF, ON WEEKS 0, 2, 6 AND 8
     Dates: start: 20180315
  2. AMIODARONE [Concomitant]
     Active Substance: AMIODARONE
     Dosage: 400 MG (200 MG, 2 IN 1 D)
     Route: 065
  3. ATENOLOL. [Concomitant]
     Active Substance: ATENOLOL
     Dosage: 100 MG (50 MG, 2 IN 1 D)
     Route: 065
  4. VENOFER [Suspect]
     Active Substance: IRON SUCROSE
     Dosage: 600 MG, 1 IN 1 WEEK
     Route: 042
     Dates: start: 2019
  5. ENTYVIO [Suspect]
     Active Substance: VEDOLIZUMAB
     Dosage: 1 DF, ON WEEKS 0, 2, 6 AND 8
     Dates: start: 20171019
  6. ENTYVIO [Suspect]
     Active Substance: VEDOLIZUMAB
     Dosage: 1 DF, ON WEEKS 0, 2, 6 AND 8
     Dates: start: 20180626
  7. ENTYVIO [Suspect]
     Active Substance: VEDOLIZUMAB
     Dosage: 1 DF, ON WEEKS 0, 2, 6 AND 8
     Dates: start: 20180626
  8. ENTYVIO [Suspect]
     Active Substance: VEDOLIZUMAB
     Dosage: 1 DF, ON WEEKS 0, 2, 6 AND 8
     Dates: start: 20180828
  9. ENTYVIO [Suspect]
     Active Substance: VEDOLIZUMAB
     Dosage: 1 DF, EVERY 4 WEEKS
     Route: 065
     Dates: start: 20190515
  10. VENOFER [Suspect]
     Active Substance: IRON SUCROSE
     Indication: ANAEMIA
     Dosage: 200 MG, 1 IN 1 WEEK
     Route: 042
  11. ENTYVIO [Suspect]
     Active Substance: VEDOLIZUMAB
     Indication: CROHN^S DISEASE
     Dosage: 1 DF, ON WEEKS 0, 2, 6 AND 8
     Dates: start: 20170906
  12. CITONEURIN [Concomitant]
     Active Substance: CYANOCOBALAMIN\PYRIDOXINE HYDROCHLORIDE\THIAMINE
     Indication: PRODUCT USED FOR UNKNOWN INDICATION
     Dosage: 3 IN 1 WEEK
     Route: 065
  13. ENTYVIO [Suspect]
     Active Substance: VEDOLIZUMAB
     Dosage: 1 DF, ON WEEKS 0, 2, 6 AND 8
     Route: 065
     Dates: start: 20190131
  14. ENTYVIO [Suspect]
     Active Substance: VEDOLIZUMAB
     Dosage: 1 DF, ON WEEKS 0, 2, 6 AND 8
     Dates: start: 20170919

REACTIONS (2)
  - Crohn^s disease [Recovered/Resolved]
  - Swelling face [Recovered/Resolved]

NARRATIVE: CASE EVENT DATE: 201709
